FAERS Safety Report 7903766-9 (Version None)
Quarter: 2011Q4

REPORT INFORMATION
  Report Type: 
  Country: None (occurrence: None)
  Receive Date: 20111109
  Receipt Date: 20111103
  Transmission Date: 20120403
  Serious: Yes (Hospitalization)
  Sender: FDA-Public Use
  Company Number: AT-ROCHE-1009394

PATIENT
  Age: 84 Year
  Sex: Male

DRUGS (3)
  1. FORTECORTIN [Concomitant]
  2. EPILANTINE [Concomitant]
  3. AVASTIN [Suspect]
     Indication: ANAPLASTIC ASTROCYTOMA
     Route: 042
     Dates: start: 20101221, end: 20110222

REACTIONS (3)
  - SEPSIS [None]
  - STATUS EPILEPTICUS [None]
  - URINARY TRACT INFECTION [None]
